FAERS Safety Report 4618631-2 (Version None)
Quarter: 2005Q1

REPORT INFORMATION
  Report Type: 
  Country: None (occurrence: None)
  Receive Date: 20050323
  Receipt Date: 20050311
  Transmission Date: 20050727
  Serious: Yes (Hospitalization, Other)
  Sender: FDA-Public Use
  Company Number: 200511034BCC

PATIENT
  Age: 79 Year
  Sex: Female
  Weight: 53.0709 kg

DRUGS (5)
  1. REGIMEN BAYER (ACETYSALICYLIC ACID) [Suspect]
     Indication: MYOCARDIAL INFARCTION
     Dosage: 81 MG, QD, ORAL
     Route: 048
     Dates: start: 20040301
  2. REGIMEN BAYER (ACETYSALICYLIC ACID) [Suspect]
     Indication: PROPHYLAXIS
     Dosage: 81 MG, QD, ORAL
     Route: 048
     Dates: start: 20040301
  3. LOPRESSOR [Concomitant]
  4. PRAVACHOL [Concomitant]
  5. TRICOR [Concomitant]

REACTIONS (2)
  - CYSTITIS [None]
  - THROMBOSIS [None]
